FAERS Safety Report 7138247-6 (Version None)
Quarter: 2010Q4

REPORT INFORMATION
  Report Type: 
  Country: None (occurrence: None)
  Receive Date: 20101103
  Receipt Date: 20100517
  Transmission Date: 20110411
  Serious: Yes (Other)
  Sender: FDA-Public Use
  Company Number: US-WYE-H15195110

PATIENT
  Sex: Male

DRUGS (3)
  1. EFFEXOR XR [Suspect]
     Indication: DEPRESSION
     Dosage: 175 MG 1X PER 1 DAY
     Dates: start: 20010904
  2. OMEPRAZOLE [Concomitant]
  3. ENALAPRIL MALEATE [Concomitant]

REACTIONS (3)
  - ANAPHYLACTOID REACTION [None]
  - LIP SWELLING [None]
  - PHARYNGEAL OEDEMA [None]
